FAERS Safety Report 10234868 (Version 1)
Quarter: 2014Q1

REPORT INFORMATION
  Report Type: Spontaneous
  Country: US (occurrence: None)
  Receive Date: 20140306
  Receipt Date: 20140306
  Transmission Date: 20141002
  Serious: Yes (Hospitalization)
  Sender: FDA-Public Use
  Company Number: 163-21880-13051712

PATIENT
  Age: 69 Year
  Sex: Male
  Weight: 108.86 kg

DRUGS (2)
  1. REVLIMID (LENALIDOMIDE) (25 MILLIGRAM, CAPSULES) [Suspect]
     Indication: PLASMA CELL MYELOMA
     Dosage: 25 MG , 1 IN 1 D, PO 02/  / 2010 - UNKNOWN THERAPY DATES
     Route: 048
     Dates: start: 201002
  2. OXYCODONE (OXYCODONE) [Concomitant]

REACTIONS (1)
  - Thrombosis [None]
